FAERS Safety Report 7245951-8 (Version None)
Quarter: 2011Q1

REPORT INFORMATION
  Report Type: 
  Country: None (occurrence: None)
  Receive Date: 20110126
  Receipt Date: 20110120
  Transmission Date: 20110831
  Serious: Yes (Disabling, Other)
  Sender: FDA-Public Use
  Company Number: FR-SANOFI-AVENTIS-2010SA075838

PATIENT
  Age: 78 Year
  Sex: Female

DRUGS (12)
  1. PLAQUENIL [Suspect]
     Route: 048
     Dates: start: 20090501, end: 20101010
  2. CACIT D3 [Suspect]
     Route: 048
  3. PLAQUENIL [Suspect]
     Route: 048
     Dates: start: 20101203
  4. SEROPLEX [Suspect]
     Indication: DEPRESSION
     Route: 048
  5. APROVEL [Suspect]
     Route: 048
  6. METOJECT [Suspect]
     Dosage: 10 MG EVERY MONDAY DOSE:10 MILLIGRAM(S)/MILLILITRE
  7. FOSAMAX [Suspect]
     Dosage: 70 MG ON FRIDAY
     Route: 048
  8. CORTANCYL [Suspect]
     Route: 048
     Dates: start: 20090701
  9. INIPOMP [Suspect]
     Route: 048
  10. VALACICLOVIR [Suspect]
     Route: 048
  11. SPECIAFOLDINE [Suspect]
     Dosage: EVERY DAY EXCEPTED MONDAY
     Route: 048
  12. FEMARA [Suspect]
     Route: 048

REACTIONS (1)
  - CATARACT [None]
